FAERS Safety Report 19781514 (Version 4)
Quarter: 2024Q4

REPORT INFORMATION
  Report Type: Spontaneous
  Country: BE (occurrence: BE)
  Receive Date: 20210902
  Receipt Date: 20241014
  Transmission Date: 20250114
  Serious: Yes (Life-Threatening, Hospitalization, Other)
  Sender: MYLAN
  Company Number: BE-EMA-DD-20210326-KUMARVN_P-150236

PATIENT
  Age: 43 Year
  Sex: Female

DRUGS (15)
  1. MYCOPHENOLATE MOFETIL [Suspect]
     Active Substance: MYCOPHENOLATE MOFETIL
     Indication: Immunosuppressant drug therapy
     Dosage: 500 MILLIGRAM, QD (2?500 MG/DAY, DECREASED)
     Route: 065
  2. MYCOPHENOLATE MOFETIL [Suspect]
     Active Substance: MYCOPHENOLATE MOFETIL
     Dosage: UNK
     Route: 065
  3. TACROLIMUS [Suspect]
     Active Substance: TACROLIMUS
     Indication: Immunosuppressant drug therapy
     Dosage: UNK
     Route: 065
  4. GANCICLOVIR [Suspect]
     Active Substance: GANCICLOVIR
     Indication: Cytomegalovirus infection
     Dosage: 5 MILLIGRAM/KILOGRAM, QD
     Route: 065
  5. GANCICLOVIR [Suspect]
     Active Substance: GANCICLOVIR
     Dosage: GANCICLOVIR IN COMBINATION WITH FOSCARNET AND CMV IG WERE RESTARTED
     Route: 065
  6. BASILIXIMAB [Suspect]
     Active Substance: BASILIXIMAB
     Indication: Immunosuppressant drug therapy
     Dosage: INDUCTION
     Route: 065
  7. FOSCARNET SODIUM [Suspect]
     Active Substance: FOSCARNET SODIUM
     Indication: Cytomegalovirus infection
     Dosage: 2 X2800 MG/DAY;STOPPED AT DAY 101; THIS DOSE WAS LOWERED AFTER 6 DAYS TREATMENT
     Route: 065
  8. FOSCARNET SODIUM [Suspect]
     Active Substance: FOSCARNET SODIUM
     Dosage: GANCICLOVIR IN COMBINATION WITH FOSCARNET
     Route: 065
  9. CIDOFOVIR [Suspect]
     Active Substance: CIDOFOVIR
     Indication: Nephropathy
     Dosage: 2.5 MILLIGRAM/KILOGRAM
     Route: 065
  10. CIDOFOVIR [Suspect]
     Active Substance: CIDOFOVIR
     Indication: Cytomegalovirus infection
     Dosage: 5 MILLIGRAM/KILOGRAM, QW
     Route: 065
  11. CIDOFOVIR [Suspect]
     Active Substance: CIDOFOVIR
     Dosage: 1 MILLIGRAM/KILOGRAM
     Route: 065
  12. METHYLPREDNISOLONE [Suspect]
     Active Substance: METHYLPREDNISOLONE
     Indication: Immunosuppressant drug therapy
     Dosage: LOW-DOSE METHYLPREDNISOLONE
     Route: 065
  13. VALGANCICLOVIR [Concomitant]
     Active Substance: VALGANCICLOVIR
     Indication: Antiviral prophylaxis
     Dosage: 450 MILLIGRAM, QD
     Route: 065
  14. VALGANCICLOVIR [Concomitant]
     Active Substance: VALGANCICLOVIR
     Dosage: AUGMENTED TO 2 X 450 MG/D (DAY 43 POST-TRANSPLANTATION)
     Route: 065
  15. HUMAN CYTOMEGALOVIRUS IMMUNE GLOBULIN [Concomitant]
     Active Substance: HUMAN CYTOMEGALOVIRUS IMMUNE GLOBULIN
     Dosage: UNK
     Route: 065

REACTIONS (11)
  - Cytomegalovirus infection [Recovered/Resolved]
  - Transplant rejection [Recovered/Resolved]
  - Hepatic function abnormal [Recovering/Resolving]
  - Viral uveitis [Recovered/Resolved]
  - Nephropathy [Recovered/Resolved]
  - Gastrointestinal disorder [Unknown]
  - Thrombocytopenia [Unknown]
  - Drug resistance [Unknown]
  - Renal impairment [Recovering/Resolving]
  - C-reactive protein increased [Unknown]
  - Off label use [Unknown]
